FAERS Safety Report 12353595 (Version 7)
Quarter: 2017Q4

REPORT INFORMATION
  Report Type: Report from Study
  Country: EC (occurrence: EC)
  Receive Date: 20160511
  Receipt Date: 20171122
  Transmission Date: 20180320
  Serious: Yes (Hospitalization, Disabling)
  Sender: FDA-Public Use
  Company Number: EC-ROCHE-1748295

PATIENT
  Age: 55 Year
  Sex: Female

DRUGS (3)
  1. HERCEPTIN [Suspect]
     Active Substance: TRASTUZUMAB
     Dosage: VIAL
     Route: 042
     Dates: start: 20151008, end: 201611
  2. LETROZOLE. [Concomitant]
     Active Substance: LETROZOLE
     Route: 065
  3. HERCEPTIN [Suspect]
     Active Substance: TRASTUZUMAB
     Indication: BREAST CANCER
     Dosage: VIAL
     Route: 042
     Dates: start: 201505

REACTIONS (9)
  - Fatigue [Not Recovered/Not Resolved]
  - Aphonia [Unknown]
  - Traumatic lung injury [Recovering/Resolving]
  - Pneumonia [Recovered/Resolved]
  - Dyspnoea [Not Recovered/Not Resolved]
  - Cough [Not Recovered/Not Resolved]
  - Lung disorder [Not Recovered/Not Resolved]
  - Respiratory disorder [Not Recovered/Not Resolved]
  - Cough [Not Recovered/Not Resolved]

NARRATIVE: CASE EVENT DATE: 201604
